FAERS Safety Report 6230696-3 (Version None)
Quarter: 2009Q2

REPORT INFORMATION
  Report Type: 
  Country: None (occurrence: None)
  Receive Date: 20090611
  Receipt Date: 20090611
  Transmission Date: 20091009
  Serious: Yes (Other)
  Sender: FDA-Public Use
  Company Number: None

PATIENT
  Sex: Male
  Weight: 88.4514 kg

DRUGS (1)
  1. TUBERSOL [Suspect]
     Indication: TUBERCULIN TEST
     Dosage: 0.1 ML'S ONCE ID
     Route: 023
     Dates: start: 20090526

REACTIONS (5)
  - ERYTHEMA [None]
  - LOCAL REACTION [None]
  - OEDEMA PERIPHERAL [None]
  - PRURITUS [None]
  - SKIN IRRITATION [None]
